FAERS Safety Report 5456494-6 (Version None)
Quarter: 2007Q3

REPORT INFORMATION
  Report Type: 
  Country: None (occurrence: None)
  Receive Date: 20070914
  Receipt Date: 20070914
  Transmission Date: 20080115
  Serious: Yes (Hospitalization)
  Sender: FDA-Public Use
  Company Number: None

PATIENT
  Age: 18 Year
  Sex: Male
  Weight: 84.8 kg

DRUGS (2)
  1. AMPICILLIN [Suspect]
     Indication: LYME DISEASE
     Dosage: 2 GRAM Q 4 HOURS IV
     Route: 042
  2. DEPAKOTE ER [Suspect]
     Indication: MANIA
     Dosage: 500MG BID PO
     Route: 048

REACTIONS (1)
  - DRUG ERUPTION [None]
